FAERS Safety Report 25641301 (Version 2)
Quarter: 2025Q3

REPORT INFORMATION
  Report Type: Spontaneous
  Country: US (occurrence: US)
  Receive Date: 20250804
  Receipt Date: 20250822
  Transmission Date: 20251021
  Serious: No
  Sender: VKT PHARMA PRIVATE LIMITED
  Company Number: US-VKT-000687

PATIENT
  Age: 49 Year
  Sex: Male
  Weight: 61 kg

DRUGS (4)
  1. ADDERALL [Concomitant]
     Active Substance: AMPHETAMINE ASPARTATE\AMPHETAMINE SULFATE\DEXTROAMPHETAMINE SACCHARATE\DEXTROAMPHETAMINE SULFATE
     Indication: Product used for unknown indication
     Route: 065
  2. PRAZOSIN [Concomitant]
     Active Substance: PRAZOSIN
     Indication: Product used for unknown indication
     Route: 065
  3. VARENICLINE [Concomitant]
     Active Substance: VARENICLINE
     Indication: Ex-tobacco user
     Route: 065
  4. TADALAFIL [Suspect]
     Active Substance: TADALAFIL
     Indication: Urinary hesitation
     Dosage: 30 TABLETS IN 1 BOTTLE
     Route: 048
     Dates: start: 202507, end: 202507

REACTIONS (5)
  - Illness [Recovered/Resolved]
  - Product substitution issue [Recovered/Resolved]
  - Muscle spasms [Recovered/Resolved]
  - Abdominal pain upper [Recovered/Resolved]
  - Nausea [Recovered/Resolved]

NARRATIVE: CASE EVENT DATE: 20250701
